FAERS Safety Report 6206691-7 (Version None)
Quarter: 2009Q2

REPORT INFORMATION
  Report Type: 
  Country: None (occurrence: None)
  Receive Date: 20090528
  Receipt Date: 20090519
  Transmission Date: 20091009
  Serious: Yes (Life-Threatening, Hospitalization)
  Sender: FDA-Public Use
  Company Number: JP-ASTRAZENECA-2009SE00712

PATIENT
  Age: 24205 Day
  Sex: Male
  Weight: 98 kg

DRUGS (7)
  1. BLOPRESS PLUS [Suspect]
     Indication: HYPERTENSION
     Dosage: 8/12.5 MG/DAILY
     Route: 048
     Dates: start: 20070320, end: 20070403
  2. BLOPRESS PLUS [Suspect]
     Dosage: 8/12.5 MG TWICE A DAY
     Route: 048
     Dates: start: 20070404
  3. BISOPROLOL FUMARATE [Suspect]
     Indication: HYPERTENSION
     Route: 048
     Dates: end: 20080526
  4. ZANIDIP [Concomitant]
     Indication: HYPERTENSION
     Route: 048
     Dates: end: 20070328
  5. ZANIDIP [Concomitant]
     Route: 048
     Dates: start: 20070329
  6. EBRANTIL [Concomitant]
     Indication: HYPERTENSION
     Route: 048
     Dates: start: 20070418
  7. EUTHYROX [Concomitant]
     Route: 048

REACTIONS (1)
  - CARDIAC ARREST [None]
